FAERS Safety Report 5903669-5 (Version None)
Quarter: 2008Q3

REPORT INFORMATION
  Report Type: 
  Country: None (occurrence: None)
  Receive Date: 20080930
  Receipt Date: 20080920
  Transmission Date: 20090109
  Serious: Yes (Hospitalization)
  Sender: FDA-Public Use
  Company Number: FR-PFIZER INC-2008079924

PATIENT
  Sex: Female

DRUGS (1)
  1. SALAZOPYRINE [Suspect]
     Indication: SPONDYLITIS
     Dates: end: 20080917

REACTIONS (7)
  - CHOLECYSTITIS [None]
  - FACE OEDEMA [None]
  - PYREXIA [None]
  - SPLEEN DISORDER [None]
  - URTICARIA [None]
  - VAGINAL DISCHARGE [None]
  - VULVAL HAEMORRHAGE [None]
